FAERS Safety Report 8153752-1 (Version None)
Quarter: 2012Q1

REPORT INFORMATION
  Report Type: 
  Country: None (occurrence: None)
  Receive Date: 20120221
  Receipt Date: 20120215
  Transmission Date: 20120608
  Serious: Yes (Hospitalization)
  Sender: FDA-Public Use
  Company Number: US-GLAXOSMITHKLINE-A0957579A

PATIENT
  Age: 44 Year
  Sex: Female
  Weight: 115 kg

DRUGS (17)
  1. CELEXA [Concomitant]
     Dosage: 40MG PER DAY
  2. IMODIUM [Concomitant]
     Dosage: 2MG AS REQUIRED
  3. POTASSIUM CHLORIDE [Concomitant]
     Dosage: 20MEQ TWICE PER DAY
  4. RISPERIDONE [Concomitant]
     Dosage: 2MG TWICE PER DAY
  5. TRAMADOL HCL [Concomitant]
  6. REVATIO [Concomitant]
     Dosage: 20MG THREE TIMES PER DAY
  7. GABAPENTIN [Concomitant]
     Dosage: 1200MG THREE TIMES PER DAY
  8. MOBIC [Concomitant]
     Dosage: 15MG PER DAY
  9. NAPROXEN (ALEVE) [Concomitant]
     Dosage: 220MG AS REQUIRED
  10. PRILOSEC [Concomitant]
     Dosage: 20MG TWICE PER DAY
  11. TORSEMIDE [Concomitant]
     Dosage: 20MG PER DAY
  12. HYDROCHLOROTHIAZIDE [Concomitant]
     Dosage: 25MG PER DAY
  13. PAXIL CR [Concomitant]
     Dosage: 37.5MG PER DAY
  14. OXYGEN [Concomitant]
     Dosage: 3L CONTINUOUS
  15. FLOLAN [Suspect]
     Indication: PULMONARY ARTERIAL HYPERTENSION
     Dosage: 40NGKM PER DAY
     Route: 042
     Dates: start: 20090806
  16. BENTYL [Concomitant]
     Dosage: 20MG FOUR TIMES PER DAY
  17. FUROSEMIDE [Concomitant]
     Dosage: 80MG TWICE PER DAY

REACTIONS (5)
  - SWELLING [None]
  - DYSPNOEA EXERTIONAL [None]
  - ABDOMINAL PAIN [None]
  - OEDEMA [None]
  - WEIGHT INCREASED [None]
